FAERS Safety Report 16590991 (Version 1)
Quarter: 2019Q3

REPORT INFORMATION
  Report Type: Spontaneous
  Country: US (occurrence: US)
  Receive Date: 20190718
  Receipt Date: 20190718
  Transmission Date: 20191004
  Serious: No
  Sender: FDA-Public Use
  Company Number: US-PFIZER INC-2019304092

PATIENT
  Age: 62 Year
  Sex: Female
  Weight: 66.22 kg

DRUGS (2)
  1. LYRICA [Suspect]
     Active Substance: PREGABALIN
     Indication: NEUROPATHY PERIPHERAL
     Dosage: 225 MG, DAILY (DOSE: 75MG, ONE IN THE MORNING AND TWO AT NIGHT)
  2. LYRICA [Suspect]
     Active Substance: PREGABALIN
     Dosage: 50 MG, UNK

REACTIONS (5)
  - Feeling abnormal [Unknown]
  - Pain [Unknown]
  - Product use issue [Unknown]
  - Intentional product misuse [Unknown]
  - Off label use [Unknown]
